FAERS Safety Report 8311226-9 (Version None)
Quarter: 2012Q2

REPORT INFORMATION
  Report Type: 
  Country: None (occurrence: None)
  Receive Date: 20120425
  Receipt Date: 20120416
  Transmission Date: 20120825
  Serious: Yes (Other)
  Sender: FDA-Public Use
  Company Number: US-JNJFOC-20120400528

PATIENT
  Sex: Female
  Weight: 73.48 kg

DRUGS (3)
  1. NEOSPORIN ECZEMA ESSENTIALS DAILY MOISTURIZING CREAM [Suspect]
     Indication: ECZEMA
     Dosage: PEA SIZE AMOUNT
     Route: 061
     Dates: start: 20120301, end: 20120101
  2. SIMVASTATIN [Concomitant]
     Indication: BLOOD CHOLESTEROL INCREASED
     Route: 065
  3. OMEPRAZOLE [Concomitant]
     Indication: GASTROOESOPHAGEAL REFLUX DISEASE
     Route: 065

REACTIONS (2)
  - DRUG INEFFECTIVE [None]
  - ECZEMA [None]
